FAERS Safety Report 21209272 (Version 1)
Quarter: 2022Q3

REPORT INFORMATION
  Report Type: Spontaneous
  Country: US (occurrence: US)
  Receive Date: 20220813
  Receipt Date: 20220813
  Transmission Date: 20221026
  Serious: No
  Sender: FDA-Public Use
  Company Number: US-SA-SAC20220809000135

PATIENT
  Age: 60 Year
  Sex: Female
  Weight: 56 kg

DRUGS (11)
  1. DUPIXENT [Suspect]
     Active Substance: DUPILUMAB
     Indication: Dermatitis atopic
     Dosage: 300 MG, QOW
     Route: 058
     Dates: start: 20220617
  2. MIRALAX [Concomitant]
     Active Substance: POLYETHYLENE GLYCOL 3350
  3. VITAMIN D2 [Concomitant]
     Active Substance: ERGOCALCIFEROL
  4. CLOBETASOL [Concomitant]
     Active Substance: CLOBETASOL
  5. TACROLIMUS [Concomitant]
     Active Substance: TACROLIMUS
  6. TRIAMCINOLONE ACETONIDE [Concomitant]
     Active Substance: TRIAMCINOLONE ACETONIDE
  7. ZYRTEC [Concomitant]
     Active Substance: CETIRIZINE HYDROCHLORIDE
  8. FAMOTIDINE [Concomitant]
     Active Substance: FAMOTIDINE
  9. LINZESS [Concomitant]
     Active Substance: LINACLOTIDE
  10. CREON [Concomitant]
     Active Substance: PANCRELIPASE AMYLASE\PANCRELIPASE LIPASE\PANCRELIPASE PROTEASE
  11. PREDNISONE [Concomitant]
     Active Substance: PREDNISONE

REACTIONS (3)
  - Dry skin [Unknown]
  - Skin exfoliation [Unknown]
  - Therapeutic response shortened [Unknown]

NARRATIVE: CASE EVENT DATE: 20220101
